FAERS Safety Report 7025276-6 (Version None)
Quarter: 2010Q4

REPORT INFORMATION
  Report Type: 
  Country: None (occurrence: None)
  Receive Date: 20101001
  Receipt Date: 20100923
  Transmission Date: 20110411
  Serious: Yes (Other)
  Sender: FDA-Public Use
  Company Number: BR-PFIZER INC-2010121379

PATIENT
  Age: 61 Year
  Sex: Female
  Weight: 67 kg

DRUGS (3)
  1. CHAMPIX [Suspect]
     Indication: TOBACCO ABUSE
     Dosage: 0.5 MG, 1X/DAY
     Route: 048
     Dates: start: 20100801, end: 20100801
  2. CHAMPIX [Suspect]
     Indication: SMOKING CESSATION THERAPY
  3. OMEPRAZOLE [Concomitant]
     Dosage: UNK
     Dates: start: 20100801, end: 20100801

REACTIONS (3)
  - DEPRESSION [None]
  - NERVOUSNESS [None]
  - WEIGHT DECREASED [None]
